FAERS Safety Report 6355222-X (Version None)
Quarter: 2009Q3

REPORT INFORMATION
  Report Type: 
  Country: None (occurrence: None)
  Receive Date: 20090909
  Receipt Date: 20090824
  Transmission Date: 20100115
  Serious: Yes (Hospitalization, Disabling)
  Sender: FDA-Public Use
  Company Number: 8051353

PATIENT
  Age: 38 Year
  Sex: Female
  Weight: 75 kg

DRUGS (4)
  1. KEPPRA [Suspect]
     Indication: EPILEPSY
  2. KEPPRA [Suspect]
     Indication: EPILEPSY
     Dosage: 3250 MG /D PO
     Route: 048
     Dates: start: 20000101
  3. FOLSAN [Concomitant]
  4. VITAMIN D [Concomitant]

REACTIONS (1)
  - CATARACT [None]
